FAERS Safety Report 7016674-5 (Version None)
Quarter: 2010Q3

REPORT INFORMATION
  Report Type: 
  Country: None (occurrence: None)
  Receive Date: 20100927
  Receipt Date: 20100915
  Transmission Date: 20110219
  Serious: Yes (Other)
  Sender: FDA-Public Use
  Company Number: US-RB-023806-09

PATIENT
  Age: 62 Year
  Sex: Male

DRUGS (6)
  1. SUBOXONE [Suspect]
     Indication: DRUG DEPENDENCE
     Route: 060
     Dates: start: 20090801, end: 20090901
  2. SUBOXONE [Suspect]
     Route: 060
     Dates: start: 20090901, end: 20091001
  3. SUBOXONE [Suspect]
     Route: 060
     Dates: start: 20091001
  4. SUBOXONE [Suspect]
     Route: 060
  5. SUBOXONE [Suspect]
     Route: 060
  6. XANAX [Suspect]
     Indication: PANIC ATTACK
     Dosage: DOSING INFORMATION UNKNOWN
     Route: 065

REACTIONS (16)
  - AMNESIA [None]
  - BALANCE DISORDER [None]
  - CONFUSIONAL STATE [None]
  - CONSTIPATION [None]
  - CONVULSION [None]
  - DIARRHOEA [None]
  - FALL [None]
  - FEELING ABNORMAL [None]
  - GAIT DISTURBANCE [None]
  - HYPERSOMNIA [None]
  - MALAISE [None]
  - NEGATIVE THOUGHTS [None]
  - NIGHTMARE [None]
  - SOMNOLENCE [None]
  - THINKING ABNORMAL [None]
  - TREMOR [None]
